FAERS Safety Report 13610293 (Version 1)
Quarter: 2017Q2

REPORT INFORMATION
  Report Type: Spontaneous
  Country: US (occurrence: US)
  Receive Date: 20170602
  Receipt Date: 20170602
  Transmission Date: 20170830
  Serious: Yes (Hospitalization)
  Sender: FDA-Public Use
  Company Number: None

PATIENT
  Age: 60 Year
  Sex: Male

DRUGS (1)
  1. HYDROCHLOROTHIAZIDE/LISINOPRIL [Suspect]
     Active Substance: HYDROCHLOROTHIAZIDE\LISINOPRIL
     Indication: HYPERTENSION
     Route: 048
     Dates: start: 20120607, end: 20170527

REACTIONS (6)
  - Chest pain [None]
  - Dysuria [None]
  - Acute coronary syndrome [None]
  - Pyrexia [None]
  - Angioedema [None]
  - Headache [None]

NARRATIVE: CASE EVENT DATE: 20170526
